FAERS Safety Report 23391403 (Version 1)
Quarter: 2024Q1

REPORT INFORMATION
  Report Type: Spontaneous
  Country: US (occurrence: None)
  Receive Date: 20240110
  Receipt Date: 20240110
  Transmission Date: 20240409
  Serious: Yes (unspecified)
  Sender: FDA-Public Use
  Company Number: None

PATIENT
  Age: 2 Day
  Sex: Female
  Weight: 56.7 kg

DRUGS (4)
  1. NIRSEVIMAB-ALIP [Suspect]
     Active Substance: NIRSEVIMAB-ALIP
     Indication: Antiviral prophylaxis
     Dosage: FREQUENCY : ONCE;?
     Route: 030
     Dates: start: 20240105, end: 20240105
  2. Neonatal [Concomitant]
  3. INTRALIPID [Concomitant]
     Active Substance: EGG PHOSPHOLIPIDS\GLYCERIN\SOYBEAN OIL
  4. Vitamin A + Dointment [Concomitant]

REACTIONS (4)
  - Crying [None]
  - Procedural complication [None]
  - Infantile apnoea [None]
  - Oxygen saturation decreased [None]

NARRATIVE: CASE EVENT DATE: 20240105
